FAERS Safety Report 8009206-6 (Version None)
Quarter: 2011Q4

REPORT INFORMATION
  Report Type: 
  Country: None (occurrence: None)
  Receive Date: 20111227
  Receipt Date: 20111221
  Transmission Date: 20120403
  Serious: Yes (Death, Hospitalization)
  Sender: FDA-Public Use
  Company Number: US-PFIZER INC-2011310670

PATIENT
  Age: 63 Year
  Sex: Male
  Weight: 69 kg

DRUGS (5)
  1. CELECOXIB [Suspect]
     Indication: NON-SMALL CELL LUNG CANCER
     Dosage: 400 MG, 2X/DAY CYCLIC
     Route: 048
     Dates: start: 20111010, end: 20111010
  2. BLINDED PLACEBO [Suspect]
     Indication: NON-SMALL CELL LUNG CANCER
     Dosage: 400 MG, 2X/DAY CYCLIC
     Route: 048
     Dates: start: 20111010, end: 20111010
  3. CARBOPLATIN [Suspect]
     Indication: NON-SMALL CELL LUNG CANCER
     Dosage: CYCLIC
     Route: 042
     Dates: start: 20111010, end: 20111010
  4. BLINDED NO SUBJECT DRUG [Suspect]
     Indication: NON-SMALL CELL LUNG CANCER
     Dosage: 400 MG, 2X/DAY CYCLIC
     Route: 048
     Dates: start: 20111010, end: 20111010
  5. GEMCITABINE HYDROCHLORIDE [Concomitant]
     Indication: NON-SMALL CELL LUNG CANCER
     Dosage: 1000 MG/M2, CYCLIC
     Route: 042
     Dates: start: 20111010, end: 20111017

REACTIONS (1)
  - MYOCARDIAL INFARCTION [None]
